FAERS Safety Report 23545286 (Version 1)
Quarter: 2024Q1

REPORT INFORMATION
  Report Type: Spontaneous
  Country: US (occurrence: US)
  Receive Date: 20240220
  Receipt Date: 20240220
  Transmission Date: 20240410
  Serious: Yes (Hospitalization)
  Sender: FDA-Public Use
  Company Number: US-CTI BIOPHARMA-2024US04517

PATIENT

DRUGS (12)
  1. VONJO [Suspect]
     Active Substance: PACRITINIB
     Indication: Myelofibrosis
     Dosage: 200 MG, BID
     Route: 048
     Dates: start: 20231124
  2. ACYCLOVIR [Concomitant]
     Active Substance: ACYCLOVIR
  3. CALCIUM\CHOLECALCIFEROL [Concomitant]
     Active Substance: CALCIUM\CHOLECALCIFEROL
  4. FAMOTIDINE [Concomitant]
     Active Substance: FAMOTIDINE
  5. FOLIC ACID [Concomitant]
     Active Substance: FOLIC ACID
  6. HYDROXYUREA [Concomitant]
     Active Substance: HYDROXYUREA
  7. CRESEMBA [Concomitant]
     Active Substance: ISAVUCONAZONIUM SULFATE
  8. METOCLOPRAMIDE [Concomitant]
     Active Substance: METOCLOPRAMIDE
  9. SULFAMETHOXAZOLE AND TRIMETHOPRIM [Concomitant]
     Active Substance: SULFAMETHOXAZOLE\TRIMETHOPRIM
  10. BUDESONIDE [Concomitant]
     Active Substance: BUDESONIDE
  11. ONDANSETRON [Concomitant]
     Active Substance: ONDANSETRON
  12. LOKELMA [Concomitant]
     Active Substance: SODIUM ZIRCONIUM CYCLOSILICATE

REACTIONS (3)
  - Feeding disorder [Unknown]
  - Sleep disorder [Unknown]
  - Nausea [Unknown]
